FAERS Safety Report 17696413 (Version 1)
Quarter: 2020Q2

REPORT INFORMATION
  Report Type: Report from Study
  Country: US (occurrence: US)
  Receive Date: 20200423
  Receipt Date: 20200423
  Transmission Date: 20200714
  Serious: Yes (Death)
  Sender: FDA-Public Use
  Company Number: US-TAIHO ONCOLOGY  INC-EU-2020-01324

PATIENT
  Sex: Female

DRUGS (9)
  1. MORPHINE [Concomitant]
     Active Substance: MORPHINE
     Dosage: NI
  2. ELIQUIS [Concomitant]
     Active Substance: APIXABAN
     Dosage: NI
  3. PROCHLORPERAZINE MALEATE. [Concomitant]
     Active Substance: PROCHLORPERAZINE MALEATE
     Dosage: NI
  4. ONDANSETRON [Concomitant]
     Active Substance: ONDANSETRON
     Dosage: NI
  5. ALBUTEROL. [Concomitant]
     Active Substance: ALBUTEROL
     Dosage: NI
  6. LONSURF [Suspect]
     Active Substance: TIPIRACIL HYDROCHLORIDE\TRIFLURIDINE
     Indication: COLON CANCER
     Dosage: CURRENT CYCLE UNKNOWN
     Route: 048
  7. CYCLOBENZAPRINE. [Concomitant]
     Active Substance: CYCLOBENZAPRINE
     Dosage: NI
  8. FUROSEMIDE. [Concomitant]
     Active Substance: FUROSEMIDE
     Dosage: NI
  9. IBUPROFEN. [Concomitant]
     Active Substance: IBUPROFEN
     Dosage: NI

REACTIONS (1)
  - Death [Fatal]
